FAERS Safety Report 4281644-7 (Version None)
Quarter: 2004Q1

REPORT INFORMATION
  Report Type: 
  Country: None (occurrence: None)
  Receive Date: 20040106
  Receipt Date: 20030529
  Transmission Date: 20041129
  Serious: Yes (Hospitalization)
  Sender: FDA-Public Use
  Company Number: DSA_22819_2003

PATIENT
  Sex: Female

DRUGS (1)
  1. CARDIZEM [Suspect]
     Dates: end: 20030101

REACTIONS (3)
  - ADVERSE DRUG REACTION [None]
  - PRURITUS [None]
  - RASH [None]
